FAERS Safety Report 5876408-4 (Version None)
Quarter: 2008Q3

REPORT INFORMATION
  Report Type: 
  Country: None (occurrence: None)
  Receive Date: 20080910
  Receipt Date: 20080905
  Transmission Date: 20090109
  Serious: Yes (Other)
  Sender: FDA-Public Use
  Company Number: US-BRISTOL-MYERS SQUIBB COMPANY-14328207

PATIENT
  Age: 52 Year
  Sex: Male

DRUGS (4)
  1. REYATAZ [Suspect]
     Indication: HIV INFECTION
  2. CRESTOR [Suspect]
  3. RITONAVIR [Suspect]
  4. TRUVADA [Suspect]

REACTIONS (1)
  - MYOSITIS [None]
